FAERS Safety Report 25250163 (Version 6)
Quarter: 2025Q2

REPORT INFORMATION
  Report Type: Spontaneous
  Country: ES (occurrence: ES)
  Receive Date: 20250429
  Receipt Date: 20250627
  Transmission Date: 20250716
  Serious: Yes (Hospitalization, Other)
  Sender: AUROBINDO
  Company Number: ES-MLMSERVICE-20250408-PI460681-00108-2

PATIENT
  Age: 63 Year
  Sex: Female

DRUGS (17)
  1. CLOZAPINE [Suspect]
     Active Substance: CLOZAPINE
     Indication: Schizophrenia
     Dosage: 300 MILLIGRAM, ONCE A DAY
     Route: 065
     Dates: start: 2009, end: 201205
  2. OLANZAPINE [Suspect]
     Active Substance: OLANZAPINE
     Indication: Psychotic disorder
     Route: 065
     Dates: start: 202207, end: 202207
  3. OLANZAPINE [Suspect]
     Active Substance: OLANZAPINE
     Indication: Schizophrenia
     Dosage: 20 MILLIGRAM, ONCE A DAY
     Route: 065
  4. OLANZAPINE [Suspect]
     Active Substance: OLANZAPINE
     Dosage: 10 MILLIGRAM, ONCE A DAY
     Route: 065
  5. RISPERIDONE [Suspect]
     Active Substance: RISPERIDONE
     Indication: Schizophrenia
     Route: 065
  6. ARIPIPRAZOLE [Suspect]
     Active Substance: ARIPIPRAZOLE
     Indication: Schizophrenia
     Dosage: 10 MILLIGRAM, ONCE A DAY
     Route: 065
     Dates: start: 202306
  7. ZUCLOPENTHIXOL [Suspect]
     Active Substance: ZUCLOPENTHIXOL
     Indication: Schizophrenia
     Route: 030
     Dates: start: 2009, end: 201205
  8. ZUCLOPENTHIXOL [Suspect]
     Active Substance: ZUCLOPENTHIXOL
     Dosage: 30 MILLIGRAM, ONCE A DAY
     Route: 065
     Dates: start: 2022, end: 202302
  9. LURASIDONE [Suspect]
     Active Substance: LURASIDONE
     Indication: Schizophrenia
     Dosage: 18.5 MILLIGRAM, ONCE A DAY
     Route: 065
     Dates: start: 202302, end: 202306
  10. LURASIDONE [Suspect]
     Active Substance: LURASIDONE
     Dosage: 111 MILLIGRAM, ONCE A DAY
     Route: 065
     Dates: start: 202306
  11. IRON [Suspect]
     Active Substance: IRON
     Indication: Bicytopenia
     Route: 065
  12. COBALAMIN [Suspect]
     Active Substance: COBALAMIN
     Indication: Bicytopenia
     Route: 065
  13. FILGRASTIM [Suspect]
     Active Substance: FILGRASTIM
     Indication: Bicytopenia
     Route: 065
  14. ZUCLOPENTHIXOL [Suspect]
     Active Substance: ZUCLOPENTHIXOL
     Indication: Schizophrenia
     Dosage: 20 MILLIGRAM, ONCE A DAY
     Route: 065
     Dates: start: 202302
  15. HALOPERIDOL [Concomitant]
     Active Substance: HALOPERIDOL
     Indication: Product used for unknown indication
     Route: 065
  16. PALIPERIDONE PALMITATE [Concomitant]
     Active Substance: PALIPERIDONE PALMITATE
     Indication: Neutropenia
     Route: 030
     Dates: start: 20230619
  17. PALIPERIDONE PALMITATE [Concomitant]
     Active Substance: PALIPERIDONE PALMITATE
     Indication: Haemolytic anaemia
     Route: 030
     Dates: start: 20230626

REACTIONS (10)
  - Drug ineffective [Unknown]
  - Leukopenia [Unknown]
  - Bursitis infective [Unknown]
  - Condition aggravated [Unknown]
  - Haemolytic anaemia [Recovering/Resolving]
  - Neutropenia [Recovering/Resolving]
  - Bicytopenia [Recovering/Resolving]
  - Adverse event [Unknown]
  - Treatment noncompliance [Unknown]
  - Psychiatric decompensation [Unknown]

NARRATIVE: CASE EVENT DATE: 20090101
